FAERS Safety Report 7997509-0 (Version None)
Quarter: 2011Q4

REPORT INFORMATION
  Report Type: 
  Country: None (occurrence: None)
  Receive Date: 20111221
  Receipt Date: 20111221
  Transmission Date: 20120403
  Serious: Yes (Hospitalization)
  Sender: FDA-Public Use
  Company Number: None

PATIENT
  Age: 55 Year
  Sex: Female
  Weight: 89.357 kg

DRUGS (1)
  1. ZOMETA [Suspect]
     Indication: OSTEOPOROSIS
     Dosage: 4MG
     Route: 042
     Dates: start: 20111109, end: 20111109

REACTIONS (8)
  - DECREASED APPETITE [None]
  - FATIGUE [None]
  - BONE PAIN [None]
  - INFLUENZA LIKE ILLNESS [None]
  - CHILLS [None]
  - DIPLOPIA [None]
  - SWELLING FACE [None]
  - PYREXIA [None]
